FAERS Safety Report 7864901-4 (Version None)
Quarter: 2011Q4

REPORT INFORMATION
  Report Type: 
  Country: None (occurrence: None)
  Receive Date: 20111028
  Receipt Date: 20100915
  Transmission Date: 20120403
  Serious: No
  Sender: FDA-Public Use
  Company Number: US-GLAXOSMITHKLINE-A0881302A

PATIENT
  Age: 80 Year
  Sex: Male

DRUGS (4)
  1. ADVAIR DISKUS 100/50 [Suspect]
     Indication: ASTHMA
     Dosage: 1PUFF TWICE PER DAY
     Route: 055
  2. LORAZEPAM [Concomitant]
  3. PROAIR HFA [Concomitant]
  4. SPIRIVA [Concomitant]

REACTIONS (3)
  - HEART RATE INCREASED [None]
  - FEELING JITTERY [None]
  - TREMOR [None]
